FAERS Safety Report 14310568 (Version 7)
Quarter: 2020Q2

REPORT INFORMATION
  Report Type: Spontaneous
  Country: DE (occurrence: DE)
  Receive Date: 20171220
  Receipt Date: 20200601
  Transmission Date: 20200713
  Serious: Yes (Other)
  Sender: FDA-Public Use
  Company Number: DE-009507513-1710DEU009661

PATIENT
  Age: 52 Year
  Sex: Female
  Weight: 79 kg

DRUGS (8)
  1. SIMVASTATIN. [Suspect]
     Active Substance: SIMVASTATIN
     Indication: HYPERLIPIDAEMIA
     Dosage: 20 MG, QD
     Route: 048
     Dates: end: 2011
  2. BEZAFIBRATE [Suspect]
     Active Substance: BEZAFIBRATE
     Indication: PRODUCT USED FOR UNKNOWN INDICATION
     Dosage: UNK
  3. SIMVASTATIN. [Suspect]
     Active Substance: SIMVASTATIN
     Dosage: UNK
     Route: 048
     Dates: start: 201604
  4. ATORVASTATIN [Suspect]
     Active Substance: ATORVASTATIN
     Indication: HYPERLIPIDAEMIA
     Dosage: UNK
  5. CLOPIDOGREL [Concomitant]
     Active Substance: CLOPIDOGREL BISULFATE
     Indication: ARTERIOSCLEROSIS
     Dosage: 75 MG, QD
     Route: 048
  6. ASPIRIN. [Concomitant]
     Active Substance: ASPIRIN
     Indication: ARTERIOSCLEROSIS
     Dosage: 100 MG, QD
     Route: 048
  7. EZETIMIBE MSD-SP 10 MG TABLETTEN [Suspect]
     Active Substance: EZETIMIBE
     Indication: HYPERLIPIDAEMIA
     Dosage: 10 MG, QD
     Route: 048
     Dates: end: 2011
  8. PANTOZOL [Concomitant]
     Active Substance: PANTOPRAZOLE SODIUM
     Indication: PROPHYLAXIS
     Dosage: 40 MG, QD
     Route: 048

REACTIONS (22)
  - Coronary artery thrombosis [Unknown]
  - Dyspnoea [Recovered/Resolved]
  - Acute myocardial infarction [Unknown]
  - Vascular stent stenosis [Unknown]
  - Abdominal pain [Recovered/Resolved]
  - Abdominal distension [Recovered/Resolved]
  - Hypertension [Unknown]
  - Back pain [Unknown]
  - Acute coronary syndrome [Unknown]
  - Coronary artery occlusion [Unknown]
  - Drug intolerance [Unknown]
  - Inflammation [Unknown]
  - Diverticular perforation [Unknown]
  - Pyrexia [Unknown]
  - Coronary artery stenosis [Unknown]
  - Hepatic cyst [Unknown]
  - Helicobacter gastritis [Unknown]
  - Carotid arteriosclerosis [Unknown]
  - Carotid arteriosclerosis [Unknown]
  - Joint swelling [Recovered/Resolved]
  - Vascular stent stenosis [Unknown]
  - Arterial stenosis [Unknown]

NARRATIVE: CASE EVENT DATE: 20110929
